FAERS Safety Report 13191185 (Version 2)
Quarter: 2017Q1

REPORT INFORMATION
  Report Type: Spontaneous
  Country: FR (occurrence: FR)
  Receive Date: 20170207
  Receipt Date: 20170301
  Transmission Date: 20170428
  Serious: Yes (Other)
  Sender: FDA-Public Use
  Company Number: FR-ASTRAZENECA-2017SE13584

PATIENT
  Age: 82 Year
  Sex: Female

DRUGS (7)
  1. TELMISARTAN. [Concomitant]
     Active Substance: TELMISARTAN
  2. XALATAN [Concomitant]
     Active Substance: LATANOPROST
  3. NEBIVOLOL. [Concomitant]
     Active Substance: NEBIVOLOL
  4. AVAMYS [Concomitant]
     Active Substance: FLUTICASONE FUROATE
  5. CRESTOR [Suspect]
     Active Substance: ROSUVASTATIN CALCIUM
     Route: 048
  6. VOTRIENT [Suspect]
     Active Substance: PAZOPANIB HYDROCHLORIDE
     Indication: RENAL CANCER
     Route: 048
     Dates: end: 20161224
  7. VOTRIENT [Suspect]
     Active Substance: PAZOPANIB HYDROCHLORIDE
     Indication: RENAL CANCER
     Route: 048
     Dates: start: 20161101

REACTIONS (4)
  - Vertigo [Not Recovered/Not Resolved]
  - Somnolence [Not Recovered/Not Resolved]
  - Cerebrovascular accident [Not Recovered/Not Resolved]
  - Headache [Not Recovered/Not Resolved]
